FAERS Safety Report 23035467 (Version 2)
Quarter: 2023Q4

REPORT INFORMATION
  Report Type: Report from Study
  Country: US (occurrence: US)
  Receive Date: 20231006
  Receipt Date: 20231011
  Transmission Date: 20240110
  Serious: Yes (Death, Other)
  Sender: FDA-Public Use
  Company Number: US-ABBVIE-5438869

PATIENT
  Sex: Female

DRUGS (1)
  1. CREON [Suspect]
     Active Substance: PANCRELIPASE AMYLASE\PANCRELIPASE LIPASE\PANCRELIPASE PROTEASE
     Indication: Pancreatic carcinoma
     Dosage: TIME INTERVAL: 0.33333333 DAYS: FORM STRENGTH: 36000 UNITS, TAKE 2 CAPSULES WITH MEALS 3 TIMES A ...
     Route: 048
     Dates: start: 202307, end: 202309

REACTIONS (1)
  - Pancreatic carcinoma [Fatal]
